FAERS Safety Report 20855915 (Version 4)
Quarter: 2022Q3

REPORT INFORMATION
  Report Type: Spontaneous
  Country: US (occurrence: US)
  Receive Date: 20220520
  Receipt Date: 20220830
  Transmission Date: 20221026
  Serious: No
  Sender: FDA-Public Use
  Company Number: US-PFIZER INC-202200699647

PATIENT
  Age: 9 Year
  Sex: Male
  Weight: 25.4 kg

DRUGS (1)
  1. GENOTROPIN [Suspect]
     Active Substance: SOMATROPIN
     Indication: Growth hormone deficiency
     Dosage: 0.9 MG, DAILY
     Dates: start: 20220120

REACTIONS (3)
  - Poor quality device used [Unknown]
  - Device leakage [Unknown]
  - Wrong technique in device usage process [Unknown]
